FAERS Safety Report 8021597-9 (Version None)
Quarter: 2012Q1

REPORT INFORMATION
  Report Type: 
  Country: None (occurrence: None)
  Receive Date: 20120104
  Receipt Date: 20120104
  Transmission Date: 20120608
  Serious: No
  Sender: FDA-Public Use
  Company Number: None

PATIENT
  Age: 52 Year
  Sex: Male
  Weight: 106.14 kg

DRUGS (1)
  1. LITHIUM CARBONATE CAP [Suspect]
     Indication: SCHIZOAFFECTIVE DISORDER
     Dosage: 1200 MG
     Route: 048
     Dates: start: 20111031, end: 20111115

REACTIONS (2)
  - HYPERNATRAEMIA [None]
  - NEPHROGENIC DIABETES INSIPIDUS [None]
